FAERS Safety Report 4316899-3 (Version None)
Quarter: 2004Q1

REPORT INFORMATION
  Report Type: 
  Country: None (occurrence: None)
  Receive Date: 20040309
  Receipt Date: 20031117
  Transmission Date: 20041129
  Serious: Yes (Other)
  Sender: FDA-Public Use
  Company Number: A03200302385

PATIENT
  Age: 63 Year
  Sex: Female

DRUGS (5)
  1. ELOXATIN [Suspect]
     Indication: COLORECTAL CANCER METASTATIC
     Dosage: 210 MG OTHER - INTRAVENOUS NOS
     Route: 042
     Dates: start: 20031007, end: 20031007
  2. ELOXATIN [Suspect]
     Indication: METASTASES TO LIVER
     Dosage: 210 MG OTHER - INTRAVENOUS NOS
     Route: 042
     Dates: start: 20031007, end: 20031007
  3. CAPECIATABINE [Concomitant]
  4. ONDANSETRON HCL [Concomitant]
  5. DEXAMETHASONE [Concomitant]

REACTIONS (1)
  - BRONCHOSPASM [None]
